FAERS Safety Report 13945391 (Version 1)
Quarter: 2017Q3

REPORT INFORMATION
  Report Type: Spontaneous
  Country: RU (occurrence: RU)
  Receive Date: 20170907
  Receipt Date: 20170907
  Transmission Date: 20171128
  Serious: No
  Sender: FDA-Public Use
  Company Number: RU-B.I. PHARMACEUTICALS,INC./RIDGEFIELD-2017-BI-047788

PATIENT
  Age: 55 Year
  Sex: Female
  Weight: 138 kg

DRUGS (1)
  1. JARDIANCE [Suspect]
     Active Substance: EMPAGLIFLOZIN
     Indication: TYPE 2 DIABETES MELLITUS
     Route: 048
     Dates: start: 20170819, end: 20170825

REACTIONS (2)
  - Ketosis [Recovered/Resolved]
  - Ketonuria [Recovered/Resolved]

NARRATIVE: CASE EVENT DATE: 20170825
